FAERS Safety Report 23244344 (Version 1)
Quarter: 2023Q4

REPORT INFORMATION
  Report Type: Report from Study
  Country: US (occurrence: US)
  Receive Date: 20231130
  Receipt Date: 20231130
  Transmission Date: 20240109
  Serious: Yes (Other)
  Sender: FDA-Public Use
  Company Number: US-ALXN-A202311404AA

PATIENT
  Sex: Female

DRUGS (1)
  1. STRENSIQ [Suspect]
     Active Substance: ASFOTASE ALFA
     Indication: Hypophosphatasia
     Dosage: UNK
     Route: 065

REACTIONS (18)
  - Haemolytic anaemia [Unknown]
  - Lipodystrophy acquired [Unknown]
  - Confusional state [Not Recovered/Not Resolved]
  - Weight increased [Not Recovered/Not Resolved]
  - Asthenia [Not Recovered/Not Resolved]
  - Fatigue [Not Recovered/Not Resolved]
  - Somnolence [Not Recovered/Not Resolved]
  - Dizziness [Unknown]
  - Brain fog [Not Recovered/Not Resolved]
  - Vitamin B12 abnormal [Unknown]
  - Headache [Unknown]
  - Blood folate abnormal [Unknown]
  - Drug ineffective [Unknown]
  - Cardiac disorder [Unknown]
  - Renal disorder [Unknown]
  - Bone loss [Unknown]
  - Lipoatrophy [Unknown]
  - Scar [Unknown]
